FAERS Safety Report 4533432-1 (Version None)
Quarter: 2004Q4

REPORT INFORMATION
  Report Type: 
  Country: None (occurrence: None)
  Receive Date: 20041221
  Receipt Date: 20041217
  Transmission Date: 20050328
  Serious: Yes (Hospitalization)
  Sender: FDA-Public Use
  Company Number: FR-ROCHE-389417

PATIENT
  Sex: Female
  Weight: 0.6 kg

DRUGS (5)
  1. NICARDIPINE HCL [Suspect]
     Indication: DRUG USE FOR UNKNOWN INDICATION
     Route: 064
     Dates: start: 20041107, end: 20041116
  2. CATAPRES [Suspect]
     Indication: DRUG USE FOR UNKNOWN INDICATION
     Route: 064
     Dates: start: 20041115, end: 20041116
  3. EUPRESSYL [Suspect]
     Indication: DRUG USE FOR UNKNOWN INDICATION
     Route: 064
     Dates: start: 20041116, end: 20041116
  4. LABETALOL HYDROCHLORIDE [Concomitant]
     Route: 064
     Dates: end: 20041107
  5. BETAMETHASONE [Concomitant]
     Route: 064
     Dates: start: 20040409, end: 20040411

REACTIONS (6)
  - CAESAREAN SECTION [None]
  - DRUG EXPOSURE DURING PREGNANCY [None]
  - FOETAL GROWTH RETARDATION [None]
  - HYPERTENSION NEONATAL [None]
  - PREMATURE BABY [None]
  - ULTRASOUND DOPPLER ABNORMAL [None]
